FAERS Safety Report 12600292 (Version 1)
Quarter: 2016Q3

REPORT INFORMATION
  Report Type: Spontaneous
  Country: US (occurrence: US)
  Receive Date: 20160727
  Receipt Date: 20160727
  Transmission Date: 20161109
  Serious: No
  Sender: FDA-Public Use
  Company Number: US-BRACCO-013634

PATIENT

DRUGS (1)
  1. READI-CAT [Suspect]
     Active Substance: BARIUM SULFATE
     Indication: DIAGNOSTIC PROCEDURE
     Route: 048

REACTIONS (2)
  - Product container seal issue [Unknown]
  - No adverse event [Unknown]
